FAERS Safety Report 8125112-0 (Version None)
Quarter: 2012Q1

REPORT INFORMATION
  Report Type: 
  Country: None (occurrence: None)
  Receive Date: 20120209
  Receipt Date: 20120201
  Transmission Date: 20120608
  Serious: Yes (Other)
  Sender: FDA-Public Use
  Company Number: BR-BAYER-2011-046701

PATIENT
  Sex: Female

DRUGS (6)
  1. DIANE [Suspect]
     Indication: ACNE
     Dosage: UNK
     Route: 048
     Dates: start: 20010101
  2. DIANE [Suspect]
     Dosage: UNK
     Route: 048
     Dates: start: 20090501, end: 20110301
  3. YAZ (24) [Suspect]
     Dosage: UNK
     Route: 048
     Dates: start: 20110401
  4. YASMIN [Suspect]
     Indication: POLYCYSTIC OVARIES
     Dosage: UNK
     Route: 048
     Dates: start: 20081001, end: 20090401
  5. ISOTRETINOIN [Concomitant]
     Indication: ACNE
     Dosage: UNK
     Route: 048
     Dates: start: 20010101
  6. SERTRALINE HYDROCHLORIDE [Concomitant]
     Dosage: 50 MG, BID
     Route: 048
     Dates: start: 20090901

REACTIONS (23)
  - NAUSEA [None]
  - ACNE [None]
  - SWELLING [None]
  - BREAST DISORDER [None]
  - ANGER [None]
  - QUALITY OF LIFE DECREASED [None]
  - HEPATITIS [None]
  - METRORRHAGIA [None]
  - HEADACHE [None]
  - BREAST DISCOMFORT [None]
  - MENSTRUAL DISORDER [None]
  - ANXIETY [None]
  - PAIN IN EXTREMITY [None]
  - DIARRHOEA [None]
  - WEIGHT INCREASED [None]
  - BREAST SWELLING [None]
  - BACK PAIN [None]
  - FLUID RETENTION [None]
  - HYPOMENORRHOEA [None]
  - IRRITABILITY [None]
  - DYSMENORRHOEA [None]
  - RETCHING [None]
  - BREAST PAIN [None]
